FAERS Safety Report 15961329 (Version 1)
Quarter: 2019Q1

REPORT INFORMATION
  Report Type: Spontaneous
  Country: US (occurrence: US)
  Receive Date: 20190214
  Receipt Date: 20190214
  Transmission Date: 20190417
  Serious: No
  Sender: FDA-Public Use
  Company Number: US-ASTRAZENECA-2019SE13348

PATIENT
  Sex: Male
  Weight: 106.6 kg

DRUGS (1)
  1. SYMBICORT [Suspect]
     Active Substance: BUDESONIDE\FORMOTEROL FUMARATE DIHYDRATE
     Indication: CHRONIC OBSTRUCTIVE PULMONARY DISEASE
     Dosage: 80/4.5 MCG, TWO PUFFS TWICE A DAY
     Route: 055
     Dates: start: 201803

REACTIONS (4)
  - Hypokinesia [Unknown]
  - Product dose omission [Unknown]
  - Off label use [Unknown]
  - Device malfunction [Unknown]
